FAERS Safety Report 21649370 (Version 1)
Quarter: 2022Q4

REPORT INFORMATION
  Report Type: Spontaneous
  Country: US (occurrence: None)
  Receive Date: 20221123
  Receipt Date: 20221123
  Transmission Date: 20230112
  Serious: No
  Sender: FDA-Public Use
  Company Number: None

PATIENT
  Age: 41 Year
  Sex: Male
  Weight: 125.1 kg

DRUGS (1)
  1. PAXLOVID [Suspect]
     Active Substance: NIRMATRELVIR\RITONAVIR
     Indication: COVID-19
     Dosage: FREQUENCY : TWICE A DAY;?
     Route: 048
     Dates: start: 20221122

REACTIONS (8)
  - Pulmonary fibrosis [None]
  - Disease progression [None]
  - Inappropriate schedule of product administration [None]
  - Product commingling [None]
  - Accidental overdose [None]
  - Accidental underdose [None]
  - Pain [None]
  - Product packaging issue [None]

NARRATIVE: CASE EVENT DATE: 20221122
